FAERS Safety Report 8621638-1 (Version None)
Quarter: 2012Q3

REPORT INFORMATION
  Report Type: 
  Country: None (occurrence: None)
  Receive Date: 20120820
  Receipt Date: 20120820
  Transmission Date: 20120928
  Serious: Yes (Hospitalization)
  Sender: FDA-Public Use
  Company Number: None

PATIENT
  Sex: Male
  Weight: 70 kg

DRUGS (1)
  1. PAZOPANIB 200 MG TABS [Suspect]
     Indication: RENAL CELL CARCINOMA
     Dosage: 800 MG QD PO
     Route: 048
     Dates: start: 20120323, end: 20120529

REACTIONS (4)
  - STAPHYLOCOCCAL INFECTION [None]
  - ABSCESS [None]
  - FISTULA [None]
  - PERINEPHRIC ABSCESS [None]
